FAERS Safety Report 21547070 (Version 1)
Quarter: 2022Q4

REPORT INFORMATION
  Report Type: Spontaneous
  Country: US (occurrence: None)
  Receive Date: 20221101
  Receipt Date: 20221101
  Transmission Date: 20230112
  Serious: Yes (Hospitalization)
  Sender: FDA-Public Use
  Company Number: None

PATIENT

DRUGS (2)
  1. FENTANYL [Suspect]
     Active Substance: FENTANYL
  2. HYDROMORPHONE [Suspect]
     Active Substance: HYDROMORPHONE

REACTIONS (3)
  - Sepsis [None]
  - Intra-abdominal fluid collection [None]
  - Abscess [None]

NARRATIVE: CASE EVENT DATE: 20210118
